FAERS Safety Report 8123192-X (Version None)
Quarter: 2012Q1

REPORT INFORMATION
  Report Type: 
  Country: None (occurrence: None)
  Receive Date: 20120208
  Receipt Date: 20120203
  Transmission Date: 20120608
  Serious: Yes (Disabling)
  Sender: FDA-Public Use
  Company Number: US-ACTELION-A-NJ2012-60170

PATIENT

DRUGS (2)
  1. TRACLEER [Suspect]
     Indication: PULMONARY ARTERIAL HYPERTENSION
     Dosage: 125 MG, BID
     Route: 048
     Dates: end: 20120130
  2. TRACLEER [Suspect]
     Dosage: UNK MG, BID
     Route: 048
     Dates: start: 20081128, end: 20110101

REACTIONS (3)
  - GAIT DISTURBANCE [None]
  - MOTOR NEURONE DISEASE [None]
  - DYSARTHRIA [None]
